FAERS Safety Report 4941495-4 (Version None)
Quarter: 2006Q1

REPORT INFORMATION
  Report Type: 
  Country: None (occurrence: None)
  Receive Date: 20060313
  Receipt Date: 20060306
  Transmission Date: 20060701
  Serious: Yes (Hospitalization)
  Sender: FDA-Public Use
  Company Number: US-BRISTOL-MYERS SQUIBB COMPANY-13304589

PATIENT
  Age: 92 Year
  Sex: Female
  Weight: 77 kg

DRUGS (11)
  1. TEQUIN [Suspect]
     Indication: BRONCHITIS ACUTE
     Route: 048
     Dates: start: 20060226, end: 20060301
  2. WARFARIN [Concomitant]
  3. SPIRONOLACTONE [Concomitant]
  4. GABAPENTIN [Concomitant]
  5. LIPITOR [Concomitant]
  6. NORVASC [Concomitant]
  7. DIGOXIN [Concomitant]
  8. COZAAR [Concomitant]
  9. TOPROL-XL [Concomitant]
     Route: 048
  10. KLOR-CON [Concomitant]
  11. OMNICEF [Concomitant]

REACTIONS (4)
  - DEHYDRATION [None]
  - DIABETIC KETOACIDOSIS [None]
  - DRUG INEFFECTIVE [None]
  - NAUSEA [None]
